FAERS Safety Report 7513768-2 (Version None)
Quarter: 2011Q2

REPORT INFORMATION
  Report Type: 
  Country: None (occurrence: None)
  Receive Date: 20110531
  Receipt Date: 20110520
  Transmission Date: 20111010
  Serious: Yes (Other)
  Sender: FDA-Public Use
  Company Number: US-BAYER-2011-015791

PATIENT
  Age: 31 Year
  Sex: Female
  Weight: 79.819 kg

DRUGS (1)
  1. MIRENA [Suspect]
     Indication: CONTRACEPTION
     Dosage: 20 MCG/24HR, UNK
     Route: 015
     Dates: start: 20080116, end: 20110204

REACTIONS (2)
  - DEVICE DISLOCATION [None]
  - PRODUCT SHAPE ISSUE [None]
